FAERS Safety Report 5876476-X (Version None)
Quarter: 2008Q3

REPORT INFORMATION
  Report Type: 
  Country: None (occurrence: None)
  Receive Date: 20080910
  Receipt Date: 20080904
  Transmission Date: 20090109
  Serious: Yes (Other)
  Sender: FDA-Public Use
  Company Number: A0745971A

PATIENT
  Age: 58 Year
  Sex: Female

DRUGS (5)
  1. ADVAIR DISKUS 100/50 [Suspect]
     Indication: ASTHMA
     Dosage: 1PUFF TWICE PER DAY
     Route: 055
  2. ALBUTEROL [Concomitant]
  3. ANTI-CHOLESTEROL MEDICATION [Concomitant]
  4. TOPROL-XL [Concomitant]
  5. SYNTHROID [Concomitant]

REACTIONS (1)
  - MACULAR DEGENERATION [None]
